FAERS Safety Report 6601212-9 (Version None)
Quarter: 2010Q1

REPORT INFORMATION
  Report Type: 
  Country: None (occurrence: None)
  Receive Date: 20100225
  Receipt Date: 20100212
  Transmission Date: 20100710
  Serious: Yes (Hospitalization)
  Sender: FDA-Public Use
  Company Number: US-ELI_LILLY_AND_COMPANY-US201002004609

PATIENT
  Age: 42 Year
  Sex: Female

DRUGS (8)
  1. PROZAC [Suspect]
     Indication: DEPRESSION
     Dosage: 20 MG, UNK
     Dates: start: 19900101
  2. PROZAC [Suspect]
     Dosage: 80 MG, UNK
     Dates: start: 20060101
  3. LITHIUM [Concomitant]
     Dosage: UNK, UNKNOWN
  4. PERPHENAZINE [Concomitant]
  5. LAMICTAL CD [Concomitant]
     Dosage: UNK, UNKNOWN
  6. KLONOPIN [Concomitant]
     Dosage: UNK, UNKNOWN
  7. NEURONTIN [Concomitant]
     Dosage: UNK, UNKNOWN
  8. HORMONES NOS [Concomitant]
     Dosage: UNK, UNKNOWN

REACTIONS (7)
  - DEPRESSION [None]
  - DRUG DEPENDENCE [None]
  - DRUG INEFFECTIVE [None]
  - DRUG LEVEL DECREASED [None]
  - FEELING ABNORMAL [None]
  - GASTRIC BYPASS [None]
  - VOMITING [None]
